FAERS Safety Report 16568304 (Version 2)
Quarter: 2019Q3

REPORT INFORMATION
  Report Type: Report from Study
  Country: IT (occurrence: IT)
  Receive Date: 20190712
  Receipt Date: 20190726
  Transmission Date: 20191004
  Serious: Yes (Other)
  Sender: FDA-Public Use
  Company Number: PHHY2019IT159017

PATIENT
  Age: 20 Year
  Sex: Male

DRUGS (1)
  1. GILENYA [Suspect]
     Active Substance: FINGOLIMOD HYDROCHLORIDE
     Indication: MULTIPLE SCLEROSIS
     Dosage: 1 DF, QD
     Route: 065
     Dates: start: 201109

REACTIONS (11)
  - Depression [Unknown]
  - Fall [Unknown]
  - Multiple sclerosis relapse [Recovered/Resolved]
  - Fatigue [Unknown]
  - Balance disorder [Unknown]
  - Multiple sclerosis relapse [Recovered/Resolved]
  - Lymphopenia [Recovered/Resolved]
  - Ataxia [Unknown]
  - Asthenia [Unknown]
  - Pyramidal tract syndrome [Unknown]
  - Nystagmus [Unknown]

NARRATIVE: CASE EVENT DATE: 201206
